FAERS Safety Report 8185952-9 (Version None)
Quarter: 2012Q1

REPORT INFORMATION
  Report Type: 
  Country: None (occurrence: None)
  Receive Date: 20120305
  Receipt Date: 20120224
  Transmission Date: 20120608
  Serious: Yes (Other)
  Sender: FDA-Public Use
  Company Number: US-ASTRAZENECA-2012SE02774

PATIENT
  Age: 52 Year
  Sex: Female
  Weight: 95.3 kg

DRUGS (9)
  1. CLOBETASOL PROPIONATE [Concomitant]
     Dosage: 0.05 % CREAM APPLY SPARINGLY TO AFFECTED AREAS TWICE DAILY
     Dates: start: 20120123
  2. VITAMIN D [Concomitant]
     Dosage: 5000 UNIT, TAKE 1 CAPSULE DAILY
     Dates: start: 20110606
  3. IBUPROFEN (ADVIL) [Concomitant]
     Dates: start: 20110610
  4. CLOBETASOL PROPIONATE [Concomitant]
     Dosage: 0.05 %  APPLY AND GENTLY MASSAGE INTO AFFECTED AREAS TWICE DAILY
     Dates: start: 20100723
  5. NEXIUM [Suspect]
     Route: 048
     Dates: start: 20080828
  6. HYDROXYZINE HCL [Concomitant]
     Dates: start: 20110713
  7. TRIAMCINOLONE ACETONIDE [Concomitant]
     Dates: start: 20110713
  8. PRILOSEC [Suspect]
     Route: 048
  9. GLUCOSAMINE MSM COMPLEX [Concomitant]
     Dates: start: 20080828

REACTIONS (19)
  - BLOOD ALKALINE PHOSPHATASE INCREASED [None]
  - DEPRESSION [None]
  - SALIVARY HYPERSECRETION [None]
  - CELLULITIS [None]
  - HYPOAESTHESIA [None]
  - DRUG INEFFECTIVE [None]
  - HYPOTHYROIDISM [None]
  - LIPOMA [None]
  - DERMATITIS [None]
  - GASTROOESOPHAGEAL REFLUX DISEASE [None]
  - ALANINE AMINOTRANSFERASE INCREASED [None]
  - HEPATITIS [None]
  - NASAL POLYPS [None]
  - CONSTIPATION [None]
  - URTICARIA [None]
  - CHRONIC SINUSITIS [None]
  - HYPERLIPIDAEMIA [None]
  - ASPARTATE AMINOTRANSFERASE INCREASED [None]
  - DRUG DOSE OMISSION [None]
